FAERS Safety Report 26158243 (Version 1)
Quarter: 2025Q4

REPORT INFORMATION
  Report Type: Report from Study
  Country: PH (occurrence: PH)
  Receive Date: 20251215
  Receipt Date: 20251215
  Transmission Date: 20260117
  Serious: Yes (Death)
  Sender: ALEXION PHARMACEUTICALS
  Company Number: PH-AstraZeneca-CH-01013931A

PATIENT
  Sex: Female

DRUGS (1)
  1. XIGDUO XR [Suspect]
     Active Substance: DAPAGLIFLOZIN PROPANEDIOL\METFORMIN HYDROCHLORIDE
     Indication: Type 2 diabetes mellitus
     Dosage: 10 MILLIGRAM, QD
     Route: 065

REACTIONS (1)
  - Death [Fatal]
